FAERS Safety Report 6137720-7 (Version None)
Quarter: 2009Q1

REPORT INFORMATION
  Report Type: 
  Country: None (occurrence: None)
  Receive Date: 20090331
  Receipt Date: 20090325
  Transmission Date: 20090719
  Serious: Yes (Death, Life-Threatening, Hospitalization, Other)
  Sender: FDA-Public Use
  Company Number: RO-BAYER-200828436GPV

PATIENT
  Age: 72 Year
  Sex: Female
  Weight: 70 kg

DRUGS (7)
  1. MOXIFLOXACIN HCL [Suspect]
     Indication: PERITONITIS BACTERIAL
     Route: 042
     Dates: start: 20081010, end: 20081014
  2. QUAMATEL [Concomitant]
     Indication: PROPHYLAXIS
     Route: 042
     Dates: start: 20081108, end: 20081112
  3. CLEXANE [Concomitant]
     Indication: THROMBOSIS PROPHYLAXIS
     Route: 058
     Dates: start: 20081010
  4. CLEXANE [Concomitant]
     Route: 058
     Dates: start: 20081020, end: 20081112
  5. PRESTARIUM [Concomitant]
     Indication: HYPERTENSION
     Route: 048
     Dates: start: 20081016, end: 20081112
  6. ARNETIN [Concomitant]
     Indication: PEPTIC ULCER
     Route: 042
     Dates: start: 20081010
  7. GLIBOMET [Concomitant]
     Indication: DIABETES MELLITUS
     Route: 065

REACTIONS (5)
  - ACUTE RESPIRATORY FAILURE [None]
  - CARDIAC ARREST [None]
  - COMA [None]
  - HYPOGLYCAEMIA [None]
  - RENAL FAILURE ACUTE [None]
